FAERS Safety Report 24585076 (Version 1)
Quarter: 2024Q4

REPORT INFORMATION
  Report Type: Spontaneous
  Country: US (occurrence: US)
  Receive Date: 20241106
  Receipt Date: 20241106
  Transmission Date: 20250115
  Serious: No
  Sender: LGM PHARMA SOLUTIONS, LLC
  Company Number: US-LGM Pharma Solutions, LLC-2164586

PATIENT
  Age: 60 Year
  Sex: Female

DRUGS (2)
  1. CHENODAL [Suspect]
     Active Substance: CHENODIOL
     Indication: Lipid metabolism disorder
     Dates: start: 20100611
  2. LOTEMAX [Concomitant]
     Active Substance: LOTEPREDNOL ETABONATE

REACTIONS (1)
  - Ocular hyperaemia [Unknown]
